FAERS Safety Report 12344065 (Version 2)
Quarter: 2018Q3

REPORT INFORMATION
  Report Type: Spontaneous
  Country: US (occurrence: US)
  Receive Date: 20160507
  Receipt Date: 20180823
  Transmission Date: 20181010
  Serious: Yes (Death, Hospitalization)
  Sender: FDA-Public Use
  Company Number: US-JNJFOC-20160319463

PATIENT
  Sex: Female

DRUGS (2)
  1. XARELTO [Suspect]
     Active Substance: RIVAROXABAN
     Indication: THROMBOSIS
     Route: 048
     Dates: start: 20120224
  2. XARELTO [Suspect]
     Active Substance: RIVAROXABAN
     Indication: THROMBOSIS
     Route: 048
     Dates: start: 20140316, end: 20140506

REACTIONS (4)
  - Cerebral haemorrhage [Fatal]
  - Haemorrhage [Fatal]
  - Gingival bleeding [Unknown]
  - Epistaxis [Unknown]

NARRATIVE: CASE EVENT DATE: 20140330
